FAERS Safety Report 13288412 (Version 1)
Quarter: 2017Q1

REPORT INFORMATION
  Report Type: Spontaneous
  Country: SE (occurrence: SE)
  Receive Date: 20170302
  Receipt Date: 20170302
  Transmission Date: 20170428
  Serious: Yes (Other)
  Sender: FDA-Public Use
  Company Number: SE-ROCHE-1900899

PATIENT
  Age: 72 Year
  Sex: Male

DRUGS (8)
  1. OMEPRAZOL [Concomitant]
     Active Substance: OMEPRAZOLE
     Dosage: OMEPRAZOLE SANDOZ
     Route: 065
  2. MORFIN (SWEDEN) [Concomitant]
     Dosage: MORFIN MEDA
     Route: 065
  3. KONAKION [Concomitant]
     Active Substance: PHYTONADIONE
     Dosage: KONAKION NOVUM
     Route: 065
  4. ALFUZOSIN [Concomitant]
     Active Substance: ALFUZOSIN
     Dosage: ALFUZOSIN ACTAVIS
     Route: 065
  5. PANODIL [Concomitant]
     Active Substance: ACETAMINOPHEN
     Route: 065
  6. FINASTERIDE. [Concomitant]
     Active Substance: FINASTERIDE
     Dosage: FINASTERID ACTAVIS
     Route: 065
  7. XELODA [Suspect]
     Active Substance: CAPECITABINE
     Indication: METASTASES TO PERITONEUM
     Dosage: 3000 MG/DAY
     Route: 048
     Dates: start: 20141127, end: 20150318
  8. IBUMETIN [Concomitant]
     Active Substance: IBUPROFEN
     Route: 065

REACTIONS (1)
  - Pemphigus [Unknown]

NARRATIVE: CASE EVENT DATE: 20150104
